FAERS Safety Report 5405433-2 (Version None)
Quarter: 2007Q3

REPORT INFORMATION
  Report Type: 
  Country: None (occurrence: None)
  Receive Date: 20070803
  Receipt Date: 20070724
  Transmission Date: 20080115
  Serious: Yes (Death)
  Sender: FDA-Public Use
  Company Number: PH-PFIZER INC-2007061026

PATIENT
  Age: 60 Year
  Sex: Female

DRUGS (4)
  1. ZYVOX [Suspect]
     Indication: NOSOCOMIAL INFECTION
     Dates: start: 20070720, end: 20070724
  2. ZYVOX [Suspect]
     Indication: PNEUMONIA
  3. SULPERAZONE [Suspect]
     Indication: NOSOCOMIAL INFECTION
     Dates: start: 20070720, end: 20070724
  4. SULPERAZONE [Suspect]
     Indication: PNEUMONIA

REACTIONS (6)
  - ACTIVATED PARTIAL THROMBOPLASTIN TIME PROLONGED [None]
  - ACUTE LEFT VENTRICULAR FAILURE [None]
  - ARRHYTHMIA [None]
  - HAEMATOMA [None]
  - PETECHIAE [None]
  - PLATELET COUNT DECREASED [None]
